FAERS Safety Report 8819392 (Version 1)
Quarter: 2012Q4

REPORT INFORMATION
  Report Type: Spontaneous
  Country: US (occurrence: None)
  Receive Date: 20121004
  Receipt Date: 20121004
  Transmission Date: 20130627
  Serious: Yes (Other)
  Sender: FDA-Public Use
  Company Number: None

PATIENT
  Age: 59 Year
  Sex: Female
  Weight: 68.04 kg

DRUGS (1)
  1. TRILIPIX [Suspect]
     Indication: TRIGLYCERIDES HIGH
     Dosage: 1 daily po
     Route: 048
     Dates: start: 20120929, end: 20120930

REACTIONS (2)
  - Myalgia [None]
  - Urticaria [None]
